FAERS Safety Report 18311323 (Version 2)
Quarter: 2020Q4

REPORT INFORMATION
  Report Type: Spontaneous
  Country: JP (occurrence: JP)
  Receive Date: 20200925
  Receipt Date: 20201030
  Transmission Date: 20210113
  Serious: Yes (Hospitalization, Other)
  Sender: FDA-Public Use
  Company Number: NVSJ2020JP006756

PATIENT
  Age: 88 Year
  Sex: Female

DRUGS (12)
  1. VEGAMOX OPHTHALMIC SOLUTION 0.5% [Suspect]
     Active Substance: MOXIFLOXACIN HYDROCHLORIDE
     Indication: ENDOPHTHALMITIS
     Dosage: 1 DRP, Q2H
     Route: 047
     Dates: start: 20200705, end: 20200707
  2. VEGAMOX OPHTHALMIC SOLUTION 0.5% [Suspect]
     Active Substance: MOXIFLOXACIN HYDROCHLORIDE
     Dosage: UNK UNK, Q2H
     Route: 047
  3. LUCENTIS [Suspect]
     Active Substance: RANIBIZUMAB
     Dosage: UNK ML
     Route: 031
  4. LUCENTIS [Suspect]
     Active Substance: RANIBIZUMAB
     Dosage: 0.05 ML(RIGHT EYES)
     Route: 031
     Dates: start: 20200513
  5. LUCENTIS [Suspect]
     Active Substance: RANIBIZUMAB
     Indication: MACULAR OEDEMA
     Dosage: UNK ML
     Route: 031
  6. LUCENTIS [Suspect]
     Active Substance: RANIBIZUMAB
     Dosage: 0.05 ML(LEFT EYES)
     Route: 031
     Dates: start: 20200804
  7. LUCENTIS [Suspect]
     Active Substance: RANIBIZUMAB
     Dosage: UNK ML
     Route: 031
  8. LUCENTIS [Suspect]
     Active Substance: RANIBIZUMAB
     Indication: AGE-RELATED MACULAR DEGENERATION
     Dosage: UNK ML
     Route: 031
  9. LUCENTIS [Suspect]
     Active Substance: RANIBIZUMAB
     Dosage: 0.05 ML(RIGHT EYES)
     Route: 031
     Dates: start: 20200727
  10. LUCENTIS [Suspect]
     Active Substance: RANIBIZUMAB
     Dosage: UNK ML
     Route: 031
  11. LUCENTIS [Suspect]
     Active Substance: RANIBIZUMAB
     Dosage: UNK ML
     Route: 031
  12. LUCENTIS [Suspect]
     Active Substance: RANIBIZUMAB
     Dosage: 0.05 ML(BOTH EYES)
     Route: 031
     Dates: start: 20200625

REACTIONS (8)
  - Vitreous opacities [Unknown]
  - Retinal haemorrhage [Not Recovered/Not Resolved]
  - Iris adhesions [Recovered/Resolved]
  - Endophthalmitis [Recovering/Resolving]
  - Post procedural infection [Recovering/Resolving]
  - Hypopyon [Recovering/Resolving]
  - Eye pain [Unknown]
  - Visual acuity reduced [Recovered/Resolved]

NARRATIVE: CASE EVENT DATE: 20200616
